FAERS Safety Report 5355821-8 (Version None)
Quarter: 2007Q2

REPORT INFORMATION
  Report Type: 
  Country: None (occurrence: None)
  Receive Date: 20070611
  Receipt Date: 20070611
  Transmission Date: 20071010
  Serious: Yes (Death)
  Sender: FDA-Public Use
  Company Number: None

PATIENT
  Age: 5 Year
  Sex: Female
  Weight: 20 kg

DRUGS (5)
  1. PROPOFOL [Suspect]
     Indication: HEPATIC FUNCTION ABNORMAL
     Dosage: IV
     Route: 042
  2. PROPOFOL [Suspect]
     Indication: THROMBOCYTOPENIA
     Dosage: IV
     Route: 042
  3. SEVOFLURANE [Suspect]
     Dosage: INHL
     Route: 055
  4. ROCURONIUM BROMIDE [Concomitant]
  5. FENTANYL [Concomitant]

REACTIONS (4)
  - BRAIN DEATH [None]
  - HAEMORRHAGE INTRACRANIAL [None]
  - HEPATITIS [None]
  - THROMBOCYTOPENIA [None]
